FAERS Safety Report 9383597 (Version 2)
Quarter: 2013Q3

REPORT INFORMATION
  Report Type: Spontaneous
  Country: US (occurrence: US)
  Receive Date: 20130704
  Receipt Date: 20130812
  Transmission Date: 20140515
  Serious: Yes (Death)
  Sender: FDA-Public Use
  Company Number: US-PFIZER INC-2013197712

PATIENT
  Age: 59 Year
  Sex: Female

DRUGS (1)
  1. SUTENT [Suspect]
     Indication: RENAL CANCER
     Dosage: 25 MG, CYCLIC (25 MG 1 PO QD X 4 WEEKS, THEN OFF 2 WEEKS)
     Route: 048
     Dates: start: 20130514

REACTIONS (2)
  - Disease progression [Fatal]
  - Renal cancer [Fatal]
